FAERS Safety Report 12542750 (Version 2)
Quarter: 2016Q3

REPORT INFORMATION
  Report Type: Spontaneous
  Country: ES (occurrence: ES)
  Receive Date: 20160709
  Receipt Date: 20160816
  Transmission Date: 20161109
  Serious: Yes (Hospitalization, Other)
  Sender: FDA-Public Use
  Company Number: ES-AMGEN-ESPSP2016087480

PATIENT
  Age: 82 Year
  Sex: Female

DRUGS (9)
  1. PROLIA [Suspect]
     Active Substance: DENOSUMAB
     Indication: OSTEOPOROSIS
     Dosage: UNK, Q6MO
     Route: 065
     Dates: start: 201512
  2. ADIRO [Concomitant]
     Active Substance: ASPIRIN
     Dosage: 100 MG, QD
  3. NITRO-DUR [Concomitant]
     Active Substance: NITROGLYCERIN
     Dosage: 10 MG, UNK
  4. ALPRAZOLAM. [Concomitant]
     Active Substance: ALPRAZOLAM
     Dosage: 0.5 MG, QD
  5. PANTOPRAZOL [Concomitant]
     Active Substance: PANTOPRAZOLE SODIUM
     Dosage: 40 MG, QD
  6. PREDNISONA [Concomitant]
     Active Substance: PREDNISONE
     Dosage: 7.5 MG, QD
  7. ATORVASTATINA [Concomitant]
     Active Substance: ATORVASTATIN
     Dosage: 40 MG, QD
  8. DELTIUS [Concomitant]
     Dosage: 25000 IU, QMO
  9. ENALAPRIL [Concomitant]
     Active Substance: ENALAPRIL
     Dosage: UNK UNK, QD

REACTIONS (5)
  - Atypical femur fracture [Unknown]
  - Hiatus hernia [Unknown]
  - Organising pneumonia [Unknown]
  - Angina unstable [Unknown]
  - Pneumonia [Unknown]

NARRATIVE: CASE EVENT DATE: 201606
